FAERS Safety Report 13350607 (Version 2)
Quarter: 2017Q1

REPORT INFORMATION
  Report Type: Spontaneous
  Country: FR (occurrence: FR)
  Receive Date: 20170320
  Receipt Date: 20170327
  Transmission Date: 20170429
  Serious: Yes (Hospitalization)
  Sender: FDA-Public Use
  Company Number: PHHY2017FR039398

PATIENT
  Age: 57 Year
  Sex: Male

DRUGS (4)
  1. EXFORGE [Suspect]
     Active Substance: AMLODIPINE BESYLATE\VALSARTAN
     Indication: SUICIDE ATTEMPT
     Dosage: UNK UNK, ONCE/SINGLE
     Route: 048
     Dates: start: 20160926, end: 20160926
  2. DULOXETINE. [Suspect]
     Active Substance: DULOXETINE
     Indication: SUICIDE ATTEMPT
     Dosage: UNK, ONCE/SINGLE
     Route: 048
     Dates: start: 20160926, end: 20160926
  3. ESIDREX [Suspect]
     Active Substance: HYDROCHLOROTHIAZIDE
     Indication: SUICIDE ATTEMPT
     Dosage: UNK UNK, ONCE/SINGLE
     Route: 048
     Dates: start: 20160926, end: 20160926
  4. FLUOXETINE [Suspect]
     Active Substance: FLUOXETINE HYDROCHLORIDE
     Indication: SUICIDE ATTEMPT
     Dosage: UNK UNK, ONCE/SINGLE
     Route: 048
     Dates: start: 20160926, end: 20160926

REACTIONS (3)
  - Malaise [Recovered/Resolved]
  - Toxicity to various agents [Recovered/Resolved]
  - Loss of consciousness [Recovered/Resolved]

NARRATIVE: CASE EVENT DATE: 20160926
